FAERS Safety Report 22195239 (Version 1)
Quarter: 2023Q2

REPORT INFORMATION
  Report Type: Other
  Country: US (occurrence: US)
  Receive Date: 20230411
  Receipt Date: 20230411
  Transmission Date: 20230722
  Serious: Yes (Death)
  Sender: FDA-Public Use
  Company Number: US-ALVOGEN-2023089661

PATIENT
  Age: 15 Year
  Sex: Female

DRUGS (10)
  1. BUPROPION [Suspect]
     Active Substance: BUPROPION
     Indication: Suicide attempt
     Route: 048
  2. SERTRALINE [Suspect]
     Active Substance: SERTRALINE HYDROCHLORIDE
     Indication: Suicide attempt
     Route: 048
  3. FLUOXETINE [Suspect]
     Active Substance: FLUOXETINE HYDROCHLORIDE
     Indication: Suicide attempt
     Route: 048
  4. TRAZODONE [Suspect]
     Active Substance: TRAZODONE HYDROCHLORIDE
     Indication: Suicide attempt
     Route: 048
  5. CYCLOBENZAPRINE [Suspect]
     Active Substance: CYCLOBENZAPRINE
     Indication: Suicide attempt
     Route: 048
  6. SPIRONOLACTONE [Suspect]
     Active Substance: SPIRONOLACTONE
     Indication: Suicide attempt
     Route: 048
  7. ARIPIPRAZOLE [Suspect]
     Active Substance: ARIPIPRAZOLE
     Indication: Suicide attempt
     Route: 048
  8. MELATONIN [Suspect]
     Active Substance: MELATONIN
     Indication: Suicide attempt
     Route: 048
  9. LORATADINE [Suspect]
     Active Substance: LORATADINE
     Indication: Suicide attempt
     Route: 048
  10. IRON [Suspect]
     Active Substance: IRON
     Indication: Suicide attempt

REACTIONS (1)
  - Completed suicide [Fatal]
